FAERS Safety Report 22627501 (Version 1)
Quarter: 2023Q2

REPORT INFORMATION
  Report Type: Other
  Country: US (occurrence: None)
  Receive Date: 20230622
  Receipt Date: 20230622
  Transmission Date: 20230721
  Serious: Yes (Hospitalization, Other)
  Sender: FDA-Public Use
  Company Number: US-ROCHE-3356632

PATIENT
  Age: 27 Year
  Sex: Female
  Weight: 90.8 kg

DRUGS (7)
  1. ENSPRYNG [Suspect]
     Active Substance: SATRALIZUMAB-MWGE
     Indication: Neuromyelitis optica spectrum disorder
     Route: 058
     Dates: start: 202212, end: 20230113
  2. ENSPRYNG [Suspect]
     Active Substance: SATRALIZUMAB-MWGE
     Indication: Demyelination
  3. RITUXAN [Suspect]
     Active Substance: RITUXIMAB
     Indication: Neuromyelitis optica spectrum disorder
     Dosage: NO
     Route: 042
     Dates: start: 201609, end: 202105
  4. RITUXAN [Suspect]
     Active Substance: RITUXIMAB
     Indication: Demyelination
     Dosage: YES
     Route: 042
     Dates: start: 20230501
  5. VERAPAMIL [Concomitant]
     Active Substance: VERAPAMIL HYDROCHLORIDE
  6. HUMAN IMMUNOGLOBULIN G [Concomitant]
     Active Substance: HUMAN IMMUNOGLOBULIN G
  7. DULOXETINE [Concomitant]
     Active Substance: DULOXETINE

REACTIONS (6)
  - Neuromyelitis optica spectrum disorder [Recovered/Resolved]
  - Hypersensitivity [Recovered/Resolved]
  - Neuralgia [Recovering/Resolving]
  - Muscular weakness [Not Recovered/Not Resolved]
  - Off label use [Unknown]
  - Gait disturbance [Unknown]

NARRATIVE: CASE EVENT DATE: 20160901
